FAERS Safety Report 5619677-8 (Version None)
Quarter: 2008Q1

REPORT INFORMATION
  Report Type: 
  Country: None (occurrence: None)
  Receive Date: 20080208
  Receipt Date: 20080204
  Transmission Date: 20080703
  Serious: Yes (Other)
  Sender: FDA-Public Use
  Company Number: US-ASTRAZENECA-2008UW01811

PATIENT
  Sex: Female

DRUGS (6)
  1. TOPROL [Suspect]
     Route: 048
  2. ASPIRIN [Suspect]
     Route: 048
  3. ACTONEL [Suspect]
  4. SEVEN COAGULATION FACTOR [Suspect]
  5. EPILEPSY MEDICATION [Concomitant]
  6. ACTONEL [Concomitant]

REACTIONS (3)
  - BLINDNESS [None]
  - GASTROINTESTINAL HAEMORRHAGE [None]
  - MYOCARDIAL INFARCTION [None]
